FAERS Safety Report 4967278-7 (Version None)
Quarter: 2006Q2

REPORT INFORMATION
  Report Type: 
  Country: None (occurrence: None)
  Receive Date: 20060404
  Receipt Date: 20060323
  Transmission Date: 20061013
  Serious: Yes (Other)
  Sender: FDA-Public Use
  Company Number: HQWYE533727MAR06

PATIENT
  Age: 53 Year
  Sex: Female
  Weight: 72.64 kg

DRUGS (2)
  1. PREMPRO [Suspect]
     Indication: HOT FLUSH
     Dosage: 1 TABLET DAILY AT AN UNSPECIFIED DOSAGE, ORAL
     Route: 048
     Dates: end: 19990101
  2. PREMPRO [Suspect]
     Indication: MENOPAUSAL SYMPTOMS
     Dosage: 1 TABLET DAILY AT AN UNSPECIFIED DOSAGE, ORAL
     Route: 048
     Dates: end: 19990101

REACTIONS (2)
  - BREAST CANCER METASTATIC [None]
  - METASTASES TO CENTRAL NERVOUS SYSTEM [None]
